FAERS Safety Report 5697833-0 (Version None)
Quarter: 2008Q2

REPORT INFORMATION
  Report Type: 
  Country: None (occurrence: None)
  Receive Date: 20080408
  Receipt Date: 20080401
  Transmission Date: 20081010
  Serious: Yes (Hospitalization)
  Sender: FDA-Public Use
  Company Number: US-JNJFOC-20080304891

PATIENT
  Sex: Female
  Weight: 116.58 kg

DRUGS (11)
  1. INFLIXIMAB [Suspect]
     Route: 042
  2. INFLIXIMAB [Suspect]
     Route: 042
  3. INFLIXIMAB [Suspect]
     Route: 042
  4. INFLIXIMAB [Suspect]
     Indication: CROHN'S DISEASE
     Route: 042
  5. HUMIRA [Concomitant]
  6. HUMIRA [Concomitant]
  7. PENTESA [Concomitant]
     Route: 048
  8. PREVACID [Concomitant]
  9. PREDNISONE [Concomitant]
  10. SOLU-MEDROL [Concomitant]
  11. MULTIVITAMIN WITH IRON [Concomitant]

REACTIONS (1)
  - CROHN'S DISEASE [None]
